FAERS Safety Report 17751822 (Version 1)
Quarter: 2020Q2

REPORT INFORMATION
  Report Type: Spontaneous
  Country: DE (occurrence: DE)
  Receive Date: 20200506
  Receipt Date: 20200506
  Transmission Date: 20200714
  Serious: Yes (Other)
  Sender: FDA-Public Use
  Company Number: NVSC2020DE113477

PATIENT
  Age: 70 Year
  Sex: Male

DRUGS (5)
  1. PAMORELIN [Suspect]
     Active Substance: TRIPTORELIN PAMOATE
     Dosage: 11.25 MG
     Route: 058
     Dates: start: 201903
  2. BICALUTAMIDE. [Concomitant]
     Active Substance: BICALUTAMIDE
     Indication: PROPHYLAXIS
     Dosage: 1 OT, QD (BICALUTAMIDE 50 (1 DAILY)  )
     Route: 065
  3. PAMORELIN [Suspect]
     Active Substance: TRIPTORELIN PAMOATE
     Indication: PROSTATE CANCER
     Dosage: UNK (DOSE NOT REPORTED)
     Route: 065
  4. DOCETAXEL. [Suspect]
     Active Substance: DOCETAXEL
     Indication: PROSTATE CANCER
     Dosage: UNK
     Route: 065
  5. DOCETAXEL. [Suspect]
     Active Substance: DOCETAXEL
     Dosage: UNK(4 MONTHS)
     Route: 065
     Dates: start: 201905, end: 201909

REACTIONS (2)
  - Concomitant disease aggravated [Unknown]
  - Pulmonary fibrosis [Unknown]

NARRATIVE: CASE EVENT DATE: 201903
